FAERS Safety Report 9894360 (Version 1)
Quarter: 2014Q1

REPORT INFORMATION
  Report Type: Spontaneous
  Country: US (occurrence: US)
  Receive Date: 20140213
  Receipt Date: 20140213
  Transmission Date: 20141002
  Serious: Yes (Other)
  Sender: FDA-Public Use
  Company Number: 2014SP000396

PATIENT
  Age: 14 Year
  Sex: Female

DRUGS (1)
  1. LATUDA [Suspect]
     Indication: AUTISM
     Route: 048
     Dates: start: 2013

REACTIONS (3)
  - Grand mal convulsion [Recovered/Resolved]
  - Weight decreased [Unknown]
  - Off label use [None]
